FAERS Safety Report 4755367-1 (Version None)
Quarter: 2005Q3

REPORT INFORMATION
  Report Type: 
  Country: None (occurrence: None)
  Receive Date: 20050826
  Receipt Date: 20050406
  Transmission Date: 20060218
  Serious: Yes (Other)
  Sender: FDA-Public Use
  Company Number: USA-2002-0000451

PATIENT
  Age: 36 Year
  Sex: Male
  Weight: 89.3 kg

DRUGS (16)
  1. OXYCONTIN [Suspect]
     Indication: PAIN
     Dosage: 20 MG, BID, ORAL
     Route: 048
  2. EFFEXOR [Concomitant]
  3. CELEBREX [Concomitant]
  4. NEURONTIN [Concomitant]
  5. SKELAXIN [Concomitant]
  6. CELEXA [Concomitant]
  7. METHYLPREDNISOLONE [Concomitant]
  8. AMBIEN [Concomitant]
  9. AMITRIPTYLINE HCL [Concomitant]
  10. VIBRAMYCIN [Concomitant]
  11. LITHIUM CARBONATE [Concomitant]
  12. BACTRIM [Concomitant]
  13. METRONIDAZOLE [Concomitant]
  14. ROXIPRIN [Concomitant]
  15. PAXIL [Concomitant]
  16. ZYDONE [Concomitant]

REACTIONS (24)
  - ANXIETY [None]
  - CHILLS [None]
  - DEPRESSION [None]
  - DRUG DEPENDENCE [None]
  - DRUG INEFFECTIVE [None]
  - DRUG WITHDRAWAL SYNDROME [None]
  - DRY MOUTH [None]
  - DYSURIA [None]
  - EJACULATION DISORDER [None]
  - FORMICATION [None]
  - HALLUCINATION [None]
  - HEADACHE [None]
  - HYPERHIDROSIS [None]
  - HYPOAESTHESIA [None]
  - HYPOMANIA [None]
  - INFLUENZA LIKE ILLNESS [None]
  - MENTAL IMPAIRMENT [None]
  - MYALGIA [None]
  - PAIN [None]
  - PARANOIA [None]
  - PERIPHERAL COLDNESS [None]
  - PSYCHOMOTOR HYPERACTIVITY [None]
  - SUICIDAL IDEATION [None]
  - THROAT IRRITATION [None]
